FAERS Safety Report 4451245-6 (Version None)
Quarter: 2004Q3

REPORT INFORMATION
  Report Type: 
  Country: None (occurrence: None)
  Receive Date: 20040913
  Receipt Date: 20040712
  Transmission Date: 20050211
  Serious: No
  Sender: FDA-Public Use
  Company Number: 2004-BP-05586BP

PATIENT
  Age: 60 Year
  Sex: Female

DRUGS (2)
  1. SPIRIVA [Suspect]
     Indication: CHRONIC OBSTRUCTIVE AIRWAYS DISEASE
     Dosage: 18 MCG (18 MCG OD), IH
     Route: 055
     Dates: start: 20040708
  2. SYNTHROID [Concomitant]

REACTIONS (3)
  - APHONIA [None]
  - HOARSENESS [None]
  - POLLAKIURIA [None]
